FAERS Safety Report 16369230 (Version 1)
Quarter: 2019Q2

REPORT INFORMATION
  Report Type: Report from Study
  Country: CA (occurrence: CA)
  Receive Date: 20190529
  Receipt Date: 20190529
  Transmission Date: 20190711
  Serious: Yes (Other)
  Sender: FDA-Public Use
  Company Number: CA-TAKEDA-2019TUS032947

PATIENT
  Age: 77 Year
  Sex: Female

DRUGS (1)
  1. BRIGATINIB [Suspect]
     Active Substance: BRIGATINIB
     Indication: NON-SMALL CELL LUNG CANCER METASTATIC
     Dosage: 180 MILLIGRAM, QD
     Route: 048
     Dates: start: 20190207

REACTIONS (2)
  - Drug ineffective [Unknown]
  - Neoplasm progression [Unknown]
